FAERS Safety Report 15663479 (Version 5)
Quarter: 2019Q2

REPORT INFORMATION
  Report Type: Report from Study
  Country: US (occurrence: US)
  Receive Date: 20181128
  Receipt Date: 20190527
  Transmission Date: 20190711
  Serious: Yes (Hospitalization)
  Sender: FDA-Public Use
  Company Number: US-BIOGEN-2018BI00649012

PATIENT
  Sex: Female

DRUGS (2)
  1. TECFIDERA [Suspect]
     Active Substance: DIMETHYL FUMARATE
     Indication: MULTIPLE SCLEROSIS
     Dosage: STARTING DOSE
     Route: 050
     Dates: start: 20181012
  2. TECFIDERA [Suspect]
     Active Substance: DIMETHYL FUMARATE
     Dosage: MAINTENANCE DOSE
     Route: 050
     Dates: start: 20181018, end: 201902

REACTIONS (14)
  - Diarrhoea [Recovered/Resolved]
  - Migraine [Unknown]
  - Band sensation [Unknown]
  - Multiple sclerosis relapse [Unknown]
  - Multiple sclerosis [Unknown]
  - Dysarthria [Unknown]
  - Flushing [Recovered/Resolved]
  - Facial pain [Unknown]
  - Product dose omission [Unknown]
  - Abdominal discomfort [Not Recovered/Not Resolved]
  - Anxiety [Unknown]
  - Dysphagia [Recovered/Resolved]
  - Urinary tract infection [Unknown]
  - Burning sensation [Unknown]
